FAERS Safety Report 7322696-7 (Version None)
Quarter: 2011Q1

REPORT INFORMATION
  Report Type: 
  Country: None (occurrence: None)
  Receive Date: 20110301
  Receipt Date: 20110223
  Transmission Date: 20110831
  Serious: No
  Sender: FDA-Public Use
  Company Number: US-PFIZER INC-2011039793

PATIENT
  Sex: Female
  Weight: 91.6 kg

DRUGS (4)
  1. ESTRING [Suspect]
     Dosage: UNK
     Dates: start: 20100701
  2. ESTRADIOL [Concomitant]
     Dosage: 1 MG, 1X/DAY
     Route: 048
  3. AMOXICILLIN AND CLAVULANATE POTASSIUM [Suspect]
     Indication: SINUSITIS
     Dosage: UNK
     Dates: start: 20110217
  4. ZITHROMAX [Suspect]
     Indication: SINUSITIS
     Dosage: UNK MG, UNK
     Route: 048
     Dates: start: 20110201, end: 20110201

REACTIONS (3)
  - FUNGAL INFECTION [None]
  - SINUSITIS [None]
  - VULVOVAGINAL DRYNESS [None]
